FAERS Safety Report 25031144 (Version 1)
Quarter: 2025Q1

REPORT INFORMATION
  Report Type: Spontaneous
  Country: US (occurrence: US)
  Receive Date: 20250303
  Receipt Date: 20250303
  Transmission Date: 20250409
  Serious: No
  Sender: TORRENT PHARMA INC.
  Company Number: US-TORRENT-00014236

PATIENT
  Sex: Male
  Weight: 68 kg

DRUGS (9)
  1. TIOPRONIN [Suspect]
     Active Substance: TIOPRONIN
     Indication: Cystinuria
     Dosage: DAILY DOSE 900 MG, 300 MG, 1 TABLET 3 TIMES A DAY.
     Route: 065
     Dates: start: 20241230
  2. ALPHA LIPOIC ACID [Concomitant]
     Active Substance: .ALPHA.-LIPOIC ACID
     Indication: Chelation therapy
     Dosage: 1200 MG DAILY
     Route: 065
  3. CREATINE [Concomitant]
     Active Substance: CREATINE
     Indication: Seasonal allergy
     Dosage: 10 MG DAILY
     Route: 065
  4. Multiple Vitamin D [Concomitant]
     Indication: Vitamin supplementation
     Dosage: 1 TABLET FOR VITAMIN SUPPLEMENT.
     Route: 065
  5. NOVAREL [Concomitant]
     Active Substance: CHORIOGONADOTROPIN ALFA
     Indication: Hypogonadism
     Dosage: 25 MCG - TWICE A WEEK
     Route: 030
  6. OMEPRAZOLE [Concomitant]
     Active Substance: OMEPRAZOLE
     Indication: Colitis ulcerative
     Dosage: 80 MG TWICE A DAY
     Route: 065
  7. ONDANSETRON [Concomitant]
     Active Substance: ONDANSETRON
     Indication: Nausea
     Route: 065
  8. PEPCID [Concomitant]
     Active Substance: FAMOTIDINE
     Indication: Colitis ulcerative
     Dosage: 20 MG DAILY - AS NEEDED
     Route: 065
  9. RINVOQ [Concomitant]
     Active Substance: UPADACITINIB
     Indication: Colitis ulcerative
     Dosage: 30 MG DAILY
     Route: 065

REACTIONS (3)
  - Nausea [Unknown]
  - Abdominal pain [Unknown]
  - Diarrhoea [Unknown]

NARRATIVE: CASE EVENT DATE: 20241230
